FAERS Safety Report 11656907 (Version 2)
Quarter: 2015Q4

REPORT INFORMATION
  Report Type: Report from Study
  Country: US (occurrence: US)
  Receive Date: 20151023
  Receipt Date: 20151027
  Transmission Date: 20160304
  Serious: No
  Sender: FDA-Public Use
  Company Number: US-ABBVIE-15P-163-1480199-00

PATIENT
  Age: 39 Year
  Sex: Female

DRUGS (4)
  1. LUPRON DEPOT [Suspect]
     Active Substance: LEUPROLIDE ACETATE
     Indication: UTERINE LEIOMYOMA
     Route: 065
     Dates: start: 20150928
  2. LOVENOX [Concomitant]
     Active Substance: ENOXAPARIN SODIUM
     Indication: PULMONARY THROMBOSIS
     Route: 058
     Dates: start: 20150815
  3. HUMALOG [Concomitant]
     Active Substance: INSULIN LISPRO
     Indication: DIABETES MELLITUS
     Dosage: 8 UNITS THREE TIMES DAILY
     Route: 058
     Dates: start: 20150815
  4. IRON INFUSION [Concomitant]
     Active Substance: IRON
     Indication: ANAEMIA
     Route: 042
     Dates: start: 201508

REACTIONS (1)
  - Menstrual disorder [Recovered/Resolved]

NARRATIVE: CASE EVENT DATE: 20151001
